FAERS Safety Report 10061092 (Version 2)
Quarter: 2014Q3

REPORT INFORMATION
  Report Type: Spontaneous
  Country: US (occurrence: US)
  Receive Date: 20140406
  Receipt Date: 20140828
  Transmission Date: 20150326
  Serious: Yes (Death, Hospitalization, Other)
  Sender: FDA-Public Use
  Company Number: US-009507513-1404USA003385

PATIENT
  Sex: Male
  Weight: 61.22 kg

DRUGS (4)
  1. VITAMIN E [Concomitant]
     Active Substance: .ALPHA.-TOCOPHEROL
     Dosage: UNK
     Dates: start: 20050608, end: 20091105
  2. JANUVIA [Suspect]
     Active Substance: SITAGLIPTIN PHOSPHATE
     Indication: TYPE 2 DIABETES MELLITUS
     Dosage: 100 MG, QD
     Route: 048
     Dates: start: 20070228, end: 20090123
  3. VITAMINS (UNSPECIFIED) [Concomitant]
     Active Substance: VITAMINS
     Dosage: UNK
     Dates: start: 20010307, end: 20090716
  4. JANUVIA [Suspect]
     Active Substance: SITAGLIPTIN PHOSPHATE
     Dosage: 50 MG QD AT TIMES BETWEEN THESE DATES
     Route: 048
     Dates: start: 20070621, end: 20090123

REACTIONS (19)
  - Bile duct stent insertion [Unknown]
  - Urinary tract infection [Unknown]
  - Diabetic retinopathy [Unknown]
  - Haematochezia [Unknown]
  - Nausea [Unknown]
  - Cholelithiasis [Unknown]
  - Gastrooesophageal reflux disease [Unknown]
  - Cholangitis [Unknown]
  - Blood triglycerides increased [Unknown]
  - Urethral stent insertion [Unknown]
  - Death [Fatal]
  - Cystostomy [Unknown]
  - Dyspnoea [Unknown]
  - Metastases to liver [Unknown]
  - Chest pain [Unknown]
  - Bile duct stent insertion [Unknown]
  - Stent placement [Unknown]
  - Vomiting [Unknown]
  - Adenocarcinoma pancreas [Unknown]

NARRATIVE: CASE EVENT DATE: 20070621
